FAERS Safety Report 16509614 (Version 1)
Quarter: 2019Q3

REPORT INFORMATION
  Report Type: Spontaneous
  Country: CN (occurrence: CN)
  Receive Date: 20190702
  Receipt Date: 20190702
  Transmission Date: 20191004
  Serious: Yes (Hospitalization)
  Sender: FDA-Public Use
  Company Number: CN-SA-2019SA174405

PATIENT
  Age: 67 Year
  Sex: Male
  Weight: 73 kg

DRUGS (6)
  1. APROVEL [Suspect]
     Active Substance: IRBESARTAN
     Indication: HYPERTENSION
     Dosage: 150 MG, QD
     Route: 048
     Dates: start: 20190531, end: 20190605
  2. LIPITOR [Concomitant]
     Active Substance: ATORVASTATIN CALCIUM
     Dosage: UNK
  3. AMLODIPINE [Concomitant]
     Active Substance: AMLODIPINE BESYLATE
  4. ACARBOSE. [Concomitant]
     Active Substance: ACARBOSE
     Dosage: UNK
  5. THIOCTIC ACID [Concomitant]
     Active Substance: .ALPHA.-LIPOIC ACID
     Dosage: UNK
  6. ASPIRIN E.C [Concomitant]
     Active Substance: ASPIRIN
     Dosage: UNK

REACTIONS (2)
  - Purpura [Recovering/Resolving]
  - Eczema [Recovering/Resolving]

NARRATIVE: CASE EVENT DATE: 20190606
